FAERS Safety Report 14241037 (Version 1)
Quarter: 2017Q4

REPORT INFORMATION
  Report Type: Spontaneous
  Country: US (occurrence: US)
  Receive Date: 20171130
  Receipt Date: 20171130
  Transmission Date: 20180321
  Serious: Yes (Other)
  Sender: FDA-Public Use
  Company Number: US-LEADIANT BIOSCIENCES INC-2017STPI000412

PATIENT
  Age: 51 Year
  Sex: Male

DRUGS (10)
  1. CARMUSTINE [Suspect]
     Active Substance: CARMUSTINE
     Indication: CENTRAL NERVOUS SYSTEM LYMPHOMA
  2. ETOPOSIDE. [Suspect]
     Active Substance: ETOPOSIDE
     Indication: CENTRAL NERVOUS SYSTEM LYMPHOMA
  3. PREDNISONE. [Suspect]
     Active Substance: PREDNISONE
     Indication: CENTRAL NERVOUS SYSTEM LYMPHOMA
  4. ARA-C [Suspect]
     Active Substance: CYTARABINE
     Indication: CENTRAL NERVOUS SYSTEM LYMPHOMA
  5. EFAVIRENZ W/EMTRICITABINE/TENOFOVIR DISOPROXI [Suspect]
     Active Substance: EFAVIRENZ\EMTRICITABINE\TENOFOVIR DISOPROXIL FUMARATE
     Indication: ANTIRETROVIRAL THERAPY
  6. RITUXIMAB. [Suspect]
     Active Substance: RITUXIMAB
  7. METHOTREXATE. [Suspect]
     Active Substance: METHOTREXATE
     Indication: CENTRAL NERVOUS SYSTEM LYMPHOMA
  8. RADIOTHERAPY [Suspect]
     Active Substance: RADIATION THERAPY
     Indication: CENTRAL NERVOUS SYSTEM LYMPHOMA
  9. MATULANE [Suspect]
     Active Substance: PROCARBAZINE HYDROCHLORIDE
     Indication: CENTRAL NERVOUS SYSTEM LYMPHOMA
  10. VINCRISTINE [Suspect]
     Active Substance: VINCRISTINE
     Indication: CENTRAL NERVOUS SYSTEM LYMPHOMA

REACTIONS (4)
  - Renal failure [Unknown]
  - Alanine aminotransferase increased [Unknown]
  - Neutropenia [Unknown]
  - Aspartate aminotransferase increased [Unknown]
